FAERS Safety Report 6419797-4 (Version None)
Quarter: 2009Q4

REPORT INFORMATION
  Report Type: 
  Country: None (occurrence: None)
  Receive Date: 20091013
  Receipt Date: 20090210
  Transmission Date: 20100525
  Serious: Yes (Hospitalization)
  Sender: FDA-Public Use
  Company Number: 1000003058

PATIENT
  Age: 86 Year
  Sex: Female

DRUGS (4)
  1. LEXAPRO [Suspect]
     Indication: ANXIETY
     Dosage: 1 IN 1 D, ORAL
     Route: 048
     Dates: start: 20080911, end: 20081001
  2. HYDROXYUREA [Concomitant]
  3. ATENOLOL [Concomitant]
  4. AMLODIPINE BESYLATE [Concomitant]

REACTIONS (2)
  - ABDOMINAL PAIN UPPER [None]
  - VOMITING [None]
